FAERS Safety Report 5230914-4 (Version None)
Quarter: 2007Q1

REPORT INFORMATION
  Report Type: 
  Country: None (occurrence: None)
  Receive Date: 20070206
  Receipt Date: 20070131
  Transmission Date: 20070707
  Serious: Yes (Hospitalization)
  Sender: FDA-Public Use
  Company Number: GB-GLAXOSMITHKLINE-B0359823A

PATIENT
  Sex: Male

DRUGS (8)
  1. SEROXAT [Suspect]
     Route: 065
  2. ALCOHOL [Suspect]
  3. THIORIDAZINE HCL [Concomitant]
  4. ZOLPIDEM TARTRATE [Concomitant]
  5. ANTABUSE [Concomitant]
  6. ZOPICLONE [Concomitant]
  7. OLANZAPINE [Concomitant]
  8. PROCYCLIDINE HYDROCHLORIDE 2MG TAB [Concomitant]

REACTIONS (6)
  - AGGRESSION [None]
  - ALCOHOL INTERACTION [None]
  - ANXIETY [None]
  - DRUG WITHDRAWAL SYNDROME [None]
  - PANIC ATTACK [None]
  - SUICIDAL IDEATION [None]
